FAERS Safety Report 10086412 (Version 1)
Quarter: 2014Q2

REPORT INFORMATION
  Report Type: Spontaneous
  Country: US (occurrence: US)
  Receive Date: 20140418
  Receipt Date: 20140418
  Transmission Date: 20141212
  Serious: No
  Sender: FDA-Public Use
  Company Number: US-ENDO PHARMACEUTICALS INC.-FURO20130005

PATIENT
  Sex: Male
  Weight: 89.89 kg

DRUGS (1)
  1. FUROSEMIDE TABLETS 20MG [Suspect]
     Indication: OEDEMA PERIPHERAL
     Route: 048
     Dates: start: 201307

REACTIONS (5)
  - Spinal column stenosis [Not Recovered/Not Resolved]
  - Condition aggravated [Not Recovered/Not Resolved]
  - Pain [Not Recovered/Not Resolved]
  - Feeling abnormal [Not Recovered/Not Resolved]
  - Drug ineffective [Not Recovered/Not Resolved]
